FAERS Safety Report 26087948 (Version 1)
Quarter: 2025Q4

REPORT INFORMATION
  Report Type: Spontaneous
  Country: EU (occurrence: EU)
  Receive Date: 20251125
  Receipt Date: 20251125
  Transmission Date: 20260118
  Serious: Yes (Death)
  Sender: GUERBET
  Company Number: EU-GUERBET / CODALI-BE-20250012

PATIENT
  Age: 69 Year
  Sex: Male

DRUGS (5)
  1. LIPIODOL [Suspect]
     Active Substance: ETHIODIZED OIL
     Indication: Splenic artery embolisation
     Dosage: EMBOLIZED WITH A MIXTURE OF HISTOACRYL AND LIPIODOL.
     Route: 013
  2. HISTOACRYL [Suspect]
     Active Substance: ENBUCRILATE
     Indication: Splenic artery embolisation
     Dosage: EMBOLIZED WITH A MIXTURE OF HISTOACRYL AND LIPIODOL.
     Route: 013
  3. LACTULOSE [Concomitant]
     Active Substance: LACTULOSE
     Indication: Hepatic encephalopathy
  4. RIFAXIMIN [Concomitant]
     Active Substance: RIFAXIMIN
     Indication: Hepatic encephalopathy
  5. SODIUM BENZOATE [Concomitant]
     Active Substance: SODIUM BENZOATE
     Indication: Hepatic encephalopathy

REACTIONS (3)
  - Splenic infarction [Fatal]
  - Peritonitis bacterial [Fatal]
  - Product use in unapproved indication [Fatal]
